FAERS Safety Report 9225036 (Version 3)
Quarter: 2013Q2

REPORT INFORMATION
  Report Type: Report from Study
  Country: US (occurrence: US)
  Receive Date: 20130411
  Receipt Date: 20130625
  Transmission Date: 20140414
  Serious: Yes (Other)
  Sender: FDA-Public Use
  Company Number: US-BAYER-2013-043293

PATIENT
  Age: 41 Year
  Sex: Male

DRUGS (3)
  1. STIVARGA [Suspect]
     Indication: COLON CANCER
     Dosage: 160 MG (4 X 40 MG), QD
     Route: 048
  2. STIVARGA [Suspect]
     Indication: COLON CANCER
     Dosage: 80 MG, QD
     Route: 048
  3. STIVARGA [Suspect]
     Indication: COLON CANCER
     Dosage: 40 MG DAILY (4X40 MG - TO BE CLARIFIED)
     Route: 048
     Dates: start: 20130307

REACTIONS (3)
  - Neuropathy peripheral [None]
  - Palmar-plantar erythrodysaesthesia syndrome [None]
  - Pain in extremity [None]
